FAERS Safety Report 18385619 (Version 1)
Quarter: 2020Q4

REPORT INFORMATION
  Report Type: Spontaneous
  Country: BR (occurrence: BR)
  Receive Date: 20201015
  Receipt Date: 20201015
  Transmission Date: 20210114
  Serious: Yes (Other)
  Sender: FDA-Public Use
  Company Number: BR-B.I. PHARMACEUTICALS,INC./RIDGEFIELD-2020-BI-053567

PATIENT
  Sex: Male

DRUGS (3)
  1. ATENSINA [Suspect]
     Active Substance: CLONIDINE
     Dosage: HALF TABLET
     Route: 048
  2. ENALAPRIL [Concomitant]
     Active Substance: ENALAPRIL
     Indication: CARDIAC DISORDER
  3. ATENSINA [Suspect]
     Active Substance: CLONIDINE
     Indication: CARDIAC DISORDER
     Route: 048
     Dates: start: 201203

REACTIONS (1)
  - Drug dependence [Unknown]
